FAERS Safety Report 9759529 (Version 1)
Quarter: 2013Q4

REPORT INFORMATION
  Report Type: Spontaneous
  Country: US (occurrence: US)
  Receive Date: 20131216
  Receipt Date: 20131216
  Transmission Date: 20140711
  Serious: No
  Sender: FDA-Public Use
  Company Number: US-BAYER-2013-152985

PATIENT
  Age: 10 Year
  Sex: Female
  Weight: 34 kg

DRUGS (1)
  1. ALEVE GELCAPS [Suspect]
     Dosage: 1 DF, ONCE
     Route: 048
     Dates: start: 20131210, end: 20131210

REACTIONS (2)
  - Off label use [None]
  - Expired drug administered [None]
